FAERS Safety Report 21978217 (Version 2)
Quarter: 2023Q1

REPORT INFORMATION
  Report Type: Spontaneous
  Country: US (occurrence: US)
  Receive Date: 20230210
  Receipt Date: 20230222
  Transmission Date: 20230418
  Serious: No
  Sender: FDA-Public Use
  Company Number: US-LUPIN PHARMACEUTICALS INC.-2023-00851

PATIENT
  Sex: Female
  Weight: 53.52 kg

DRUGS (1)
  1. RIFAMPIN [Suspect]
     Active Substance: RIFAMPIN
     Indication: Latent tuberculosis
     Dosage: 2 DOSAGE FORM, QD
     Route: 048
     Dates: start: 20220706, end: 20221106

REACTIONS (2)
  - Recalled product administered [Unknown]
  - No adverse event [Unknown]
